FAERS Safety Report 16259137 (Version 1)
Quarter: 2019Q2

REPORT INFORMATION
  Report Type: Spontaneous
  Country: NL (occurrence: NL)
  Receive Date: 20190501
  Receipt Date: 20190501
  Transmission Date: 20190711
  Serious: Yes (Other)
  Sender: FDA-Public Use
  Company Number: NL-TEVA-2019-NL-1043503

PATIENT
  Age: 18 Year
  Sex: Female
  Weight: 80 kg

DRUGS (9)
  1. ABILIFY [Interacting]
     Active Substance: ARIPIPRAZOLE
     Indication: COMPULSIONS
     Dosage: .5 MILLIGRAM DAILY; ONCE A DAY 0.5 MG
     Dates: start: 20190308
  2. FLUOXETINE [Suspect]
     Active Substance: FLUOXETINE HYDROCHLORIDE
     Indication: DEPRESSED MOOD
     Dosage: 20 MG
     Dates: start: 20190215
  3. FLUOXETINE [Interacting]
     Active Substance: FLUOXETINE HYDROCHLORIDE
     Dosage: 10 MG
     Dates: start: 20190208
  4. ABILIFY [Interacting]
     Active Substance: ARIPIPRAZOLE
     Indication: IMPULSIVE BEHAVIOUR
  5. SALMETEROL / FLUTICASON 25 / 250 MICROGRAM / AEROSOL [Concomitant]
  6. SALBUTAMOL 100 MICROGRAM [Concomitant]
  7. MACROGOL [Concomitant]
     Active Substance: POLYETHYLENE GLYCOLS
     Dosage: 1X20GRAM
  8. ABILIFY [Interacting]
     Active Substance: ARIPIPRAZOLE
     Indication: ANXIETY
     Dosage: 1 MILLIGRAM DAILY; 1 MG
     Dates: start: 20190315, end: 20190323
  9. ABILIFY [Interacting]
     Active Substance: ARIPIPRAZOLE
     Indication: INSOMNIA

REACTIONS (3)
  - Orthostatic hypotension [Recovered/Resolved]
  - Syncope [Recovered/Resolved]
  - Drug interaction [Recovered/Resolved]

NARRATIVE: CASE EVENT DATE: 20190317
